FAERS Safety Report 25787663 (Version 1)
Quarter: 2025Q3

REPORT INFORMATION
  Report Type: Spontaneous
  Country: US (occurrence: US)
  Receive Date: 20250910
  Receipt Date: 20250910
  Transmission Date: 20251020
  Serious: Yes (Hospitalization)
  Sender: INTERCHEM
  Company Number: US-HQ SPECIALTY-US-2025INT000066

PATIENT
  Age: 45 Year
  Sex: Male

DRUGS (3)
  1. DEXMEDETOMIDINE HYDROCHLORIDE [Suspect]
     Active Substance: DEXMEDETOMIDINE HYDROCHLORIDE
     Indication: Medical procedure
  2. ROPIVACAINE [Suspect]
     Active Substance: ROPIVACAINE
     Indication: Medical procedure
  3. EPINEPHRINE [Suspect]
     Active Substance: EPINEPHRINE
     Indication: Medical procedure

REACTIONS (4)
  - Acute respiratory distress syndrome [Recovered/Resolved]
  - Acquired diaphragmatic eventration [Recovered/Resolved]
  - Phrenic nerve injury [Recovered/Resolved]
  - Incorrect route of product administration [Recovered/Resolved]
